FAERS Safety Report 5925991-9 (Version None)
Quarter: 2008Q4

REPORT INFORMATION
  Report Type: 
  Country: None (occurrence: None)
  Receive Date: 20081021
  Receipt Date: 20071030
  Transmission Date: 20090506
  Serious: No
  Sender: FDA-Public Use
  Company Number: US-ABBOTT-07P-163-0422824-00

PATIENT
  Sex: Male

DRUGS (2)
  1. VICOPROFEN [Suspect]
     Indication: ROAD TRAFFIC ACCIDENT
     Route: 048
     Dates: start: 20061001, end: 20061101
  2. VICOPROFEN [Suspect]
     Indication: PAIN

REACTIONS (1)
  - HEPATIC ENZYME INCREASED [None]
